FAERS Safety Report 19500018 (Version 1)
Quarter: 2021Q3

REPORT INFORMATION
  Report Type: Report from Study
  Country: US (occurrence: US)
  Receive Date: 20210707
  Receipt Date: 20210707
  Transmission Date: 20211014
  Serious: No
  Sender: FDA-Public Use
  Company Number: US-KYOWAKIRIN-2018BKK001367

PATIENT

DRUGS (2)
  1. CRYSVITA [Suspect]
     Active Substance: BUROSUMAB-TWZA
     Indication: HEREDITARY HYPOPHOSPHATAEMIC RICKETS
     Dosage: 20 MG; 80 MG IN TOTAL (USING 3 INJECTIONS, 30 AND 20 MG STRENGTH), EVERY FOUR WEEKS
     Route: 058
     Dates: start: 20180509
  2. CRYSVITA [Suspect]
     Active Substance: BUROSUMAB-TWZA
     Indication: HEREDITARY HYPOPHOSPHATAEMIC RICKETS
     Dosage: 60 MG; 80 MG IN TOTAL (USING 3 INJECTIONS, 30 AND 20 MG STRENGTH) EVERY FOUR WEEKS
     Route: 058
     Dates: start: 20180509

REACTIONS (1)
  - Energy increased [Recovered/Resolved]

NARRATIVE: CASE EVENT DATE: 20180513
